FAERS Safety Report 8508768-X (Version None)
Quarter: 2012Q3

REPORT INFORMATION
  Report Type: 
  Country: None (occurrence: None)
  Receive Date: 20120703
  Receipt Date: 20120612
  Transmission Date: 20120928
  Serious: Yes (Other)
  Sender: FDA-Public Use
  Company Number: 001274817A

PATIENT
  Age: 56 Year
  Sex: Female

DRUGS (2)
  1. MEANINGFUL BEAUTY ANTIOXIDANT DAY CREME SPF 20 [Suspect]
     Dosage: ONCE DERMAL
     Dates: start: 20120611
  2. EPIPEN PRN [Concomitant]

REACTIONS (1)
  - THROAT TIGHTNESS [None]
